FAERS Safety Report 16564353 (Version 1)
Quarter: 2019Q3

REPORT INFORMATION
  Report Type: Spontaneous
  Country: CN (occurrence: CN)
  Receive Date: 20190712
  Receipt Date: 20190712
  Transmission Date: 20191004
  Serious: Yes (Other)
  Sender: FDA-Public Use
  Company Number: CN-LUPIN PHARMACEUTICALS INC.-2019-04296

PATIENT
  Age: 55 Year
  Sex: Female

DRUGS (8)
  1. TETRACYCLINE [Suspect]
     Active Substance: TETRACYCLINE
     Dosage: 500 MILLIGRAM, TID, AGAIN TOOK MEDICINE FOR 3DAYS
     Route: 065
  2. TAKEPRON [Suspect]
     Active Substance: LANSOPRAZOLE
     Indication: HELICOBACTER INFECTION
     Dosage: 30 MILLIGRAM, BID, USED MEDICINE FOR 5DAYS
     Route: 065
  3. TETRACYCLINE [Suspect]
     Active Substance: TETRACYCLINE
     Indication: HELICOBACTER INFECTION
     Dosage: 500 MILLIGRAM, TID, USED MEDICINE FOR 5DAYS
     Route: 065
  4. METRONIDAZOLE. [Suspect]
     Active Substance: METRONIDAZOLE
     Dosage: 400 MILLIGRAM, TID, AGAIN TOOK MEDICINE FOR 3DAYS
     Route: 065
  5. METRONIDAZOLE. [Suspect]
     Active Substance: METRONIDAZOLE
     Indication: HELICOBACTER INFECTION
     Dosage: 400 MILLIGRAM, TID, USED MEDICINE FOR 5DAYS
     Route: 065
  6. TAKEPRON [Suspect]
     Active Substance: LANSOPRAZOLE
     Dosage: 30 MILLIGRAM, BID, AGAIN TOOK MEDICINE FOR 3DAYS
     Route: 065
  7. BISMUTH PECTIN [Suspect]
     Active Substance: BISMUTH
     Indication: HELICOBACTER INFECTION
     Dosage: 150 MILLIGRAM, TID, USED MEDICINE FOR 5DAYS
     Route: 065
  8. BISMUTH PECTIN [Suspect]
     Active Substance: BISMUTH
     Dosage: 150 MILLIGRAM, TID, AGAIN TOOK MEDICINE FOR 3DAYS
     Route: 065

REACTIONS (3)
  - Treatment noncompliance [Unknown]
  - Headache [Recovered/Resolved]
  - Dizziness [Recovered/Resolved]
